FAERS Safety Report 26092474 (Version 1)
Quarter: 2025Q4

REPORT INFORMATION
  Report Type: Other
  Country: EU (occurrence: EU)
  Receive Date: 20251126
  Receipt Date: 20251126
  Transmission Date: 20260117
  Serious: Yes (Hospitalization)
  Sender: Atnahs Healthcare
  Company Number: None

PATIENT

DRUGS (4)
  1. NAPROSYN [Suspect]
     Active Substance: NAPROXEN
     Indication: Migraine
     Dosage: 550 MG EVERY 12 HOURS
     Route: 048
     Dates: start: 20240704, end: 20250923
  2. ACETAMINOPHEN\TRAMADOL [Suspect]
     Active Substance: ACETAMINOPHEN\TRAMADOL
     Indication: Migraine
     Dosage: 37.5MG/325MG EVERY 12H/ 1 DOSAGE FORM
     Route: 048
     Dates: start: 20150911, end: 20250923
  3. METAMIZOL [Suspect]
     Active Substance: METAMIZOLE SODIUM
     Indication: Migraine
     Dosage: 575 MG 1-0-1
     Route: 048
     Dates: start: 20150625
  4. SUMATRIPTAN SUCCINATE [Suspect]
     Active Substance: SUMATRIPTAN SUCCINATE
     Indication: Migraine
     Dosage: 50MG 1-0-0
     Route: 048
     Dates: start: 20190211, end: 20250901

REACTIONS (2)
  - Medication overuse headache [Recovered/Resolved]
  - Condition aggravated [Recovered/Resolved]

NARRATIVE: CASE EVENT DATE: 20250828
